FAERS Safety Report 8217597-6 (Version None)
Quarter: 2012Q1

REPORT INFORMATION
  Report Type: 
  Country: None (occurrence: None)
  Receive Date: 20120319
  Receipt Date: 20120319
  Transmission Date: 20120608
  Serious: Yes (Life-Threatening, Hospitalization)
  Sender: FDA-Public Use
  Company Number: None

PATIENT
  Sex: Male
  Weight: 96.161 kg

DRUGS (1)
  1. BOTOX [Suspect]
     Dosage: 400 UNITS
     Route: 030
     Dates: start: 20110524, end: 20110828

REACTIONS (3)
  - DYSPHAGIA [None]
  - PRODUCT QUALITY ISSUE [None]
  - DRUG EFFECT INCREASED [None]
